FAERS Safety Report 16021103 (Version 1)
Quarter: 2019Q2

REPORT INFORMATION
  Report Type: Spontaneous
  Country: US (occurrence: US)
  Receive Date: 20190228
  Receipt Date: 20190228
  Transmission Date: 20190711
  Serious: No
  Sender: FDA-Public Use
  Company Number: None

PATIENT
  Age: 16 Year
  Sex: Female
  Weight: 51.75 kg

DRUGS (1)
  1. EPIDUO FORTE [Suspect]
     Active Substance: ADAPALENE\BENZOYL PEROXIDE
     Indication: ACNE
     Route: 061
     Dates: start: 20190122, end: 20190228

REACTIONS (5)
  - Rash macular [None]
  - Oral discomfort [None]
  - Skin exfoliation [None]
  - Lip erythema [None]
  - Skin discolouration [None]

NARRATIVE: CASE EVENT DATE: 20190221
